FAERS Safety Report 11144176 (Version 1)
Quarter: 2015Q2

REPORT INFORMATION
  Report Type: Spontaneous
  Country: US (occurrence: US)
  Receive Date: 20150528
  Receipt Date: 20150528
  Transmission Date: 20150821
  Serious: No
  Sender: FDA-Public Use
  Company Number: US-AMGEN-USASP2015050882

PATIENT
  Age: 45 Year
  Sex: Female

DRUGS (1)
  1. ENBREL [Suspect]
     Active Substance: ETANERCEPT
     Indication: AUTOIMMUNE DISORDER
     Dosage: 50 MG, 2 TIMES/WK
     Route: 058

REACTIONS (2)
  - Injection site pain [Unknown]
  - Injection site erythema [Unknown]
